FAERS Safety Report 6209457-7 (Version None)
Quarter: 2009Q2

REPORT INFORMATION
  Report Type: 
  Country: None (occurrence: None)
  Receive Date: 20090522
  Receipt Date: 20090512
  Transmission Date: 20091009
  Serious: Yes (Hospitalization)
  Sender: FDA-Public Use
  Company Number: 2009-196644-NL

PATIENT
  Age: 61 Year
  Sex: Female

DRUGS (2)
  1. DEXAMETHASONE [Suspect]
     Indication: MULTIPLE MYELOMA
     Dosage: DF
     Dates: start: 20030101
  2. THALIDOMIDE [Suspect]
     Indication: MULTIPLE MYELOMA
     Dosage: DF
     Dates: start: 20050101

REACTIONS (7)
  - CENTRAL NERVOUS SYSTEM LESION [None]
  - ENCEPHALITIS [None]
  - HYDROCEPHALUS [None]
  - MYELOMA RECURRENCE [None]
  - NEUROCRYPTOCOCCOSIS [None]
  - POLYNEUROPATHY [None]
  - STEM CELL TRANSPLANT [None]
